FAERS Safety Report 5089958-8 (Version None)
Quarter: 2006Q3

REPORT INFORMATION
  Report Type: 
  Country: None (occurrence: None)
  Receive Date: 20060828
  Receipt Date: 20060816
  Transmission Date: 20061208
  Serious: Yes (Death)
  Sender: FDA-Public Use
  Company Number: DE-BRISTOL-MYERS SQUIBB COMPANY-13487509

PATIENT
  Age: 66 Year
  Sex: Male

DRUGS (11)
  1. ERBITUX [Suspect]
     Indication: COLORECTAL CANCER METASTATIC
     Route: 042
     Dates: start: 20060727
  2. CAMPTOSAR [Suspect]
     Indication: COLORECTAL CANCER METASTATIC
     Route: 042
     Dates: start: 20060727
  3. LEUCOVORIN CALCIUM [Suspect]
     Indication: COLORECTAL CANCER METASTATIC
  4. FLUOROURACIL [Suspect]
     Indication: COLORECTAL CANCER METASTATIC
  5. PANTOZOL [Concomitant]
     Indication: DRUG USE FOR UNKNOWN INDICATION
  6. LACTULOSE [Concomitant]
     Indication: DRUG USE FOR UNKNOWN INDICATION
  7. FURO [Concomitant]
     Indication: DRUG USE FOR UNKNOWN INDICATION
  8. SPIRONOLAKTON [Concomitant]
     Indication: DRUG USE FOR UNKNOWN INDICATION
  9. KALIUM [Concomitant]
     Indication: DRUG USE FOR UNKNOWN INDICATION
  10. CALCIUM GLUCONATE [Concomitant]
     Indication: DRUG USE FOR UNKNOWN INDICATION
  11. DEXAMETHASONE + NEOMYCIN SULFATE [Concomitant]
     Indication: DRUG USE FOR UNKNOWN INDICATION
     Route: 047

REACTIONS (2)
  - GASTRIC HAEMORRHAGE [None]
  - HEPATIC FAILURE [None]
